FAERS Safety Report 18428735 (Version 1)
Quarter: 2020Q4

REPORT INFORMATION
  Report Type: Spontaneous
  Country: FR (occurrence: FR)
  Receive Date: 20201026
  Receipt Date: 20201026
  Transmission Date: 20210114
  Serious: Yes (Other)
  Sender: FDA-Public Use
  Company Number: FR-MYLANLABS-2020M1089566

PATIENT
  Age: 61 Year
  Sex: Female

DRUGS (1)
  1. LEVETIRACETAM  MYLAN [Suspect]
     Active Substance: LEVETIRACETAM
     Indication: EPILEPSY
     Dosage: NON PR?CIS?
     Route: 048
     Dates: start: 20200808, end: 20200812

REACTIONS (3)
  - Leukopenia [Recovered/Resolved]
  - Platelet count decreased [Recovered/Resolved]
  - Rash erythematous [Recovered/Resolved]

NARRATIVE: CASE EVENT DATE: 20200811
